FAERS Safety Report 6032158-5 (Version None)
Quarter: 2009Q1

REPORT INFORMATION
  Report Type: 
  Country: None (occurrence: None)
  Receive Date: 20090107
  Receipt Date: 20081224
  Transmission Date: 20090719
  Serious: Yes (Other)
  Sender: FDA-Public Use
  Company Number: 2008003354

PATIENT
  Age: 55 Year
  Sex: Male

DRUGS (3)
  1. TARCEVA [Suspect]
     Indication: HEPATIC NEOPLASM MALIGNANT
     Dosage: 150 MG, QD, ORAL, 150 MG, QD, ORAL
     Route: 048
     Dates: start: 20080601, end: 20080601
  2. TARCEVA [Suspect]
     Indication: HEPATIC NEOPLASM MALIGNANT
     Dosage: 150 MG, QD, ORAL, 150 MG, QD, ORAL
     Route: 048
     Dates: start: 20080601
  3. GEMCITABINE [Suspect]

REACTIONS (9)
  - EPISTAXIS [None]
  - GASTRIC ULCER [None]
  - GASTROINTESTINAL ANGIODYSPLASIA [None]
  - HAEMATOCHEZIA [None]
  - HAEMATOCRIT DECREASED [None]
  - INTERVERTEBRAL DISC DEGENERATION [None]
  - PAIN IN EXTREMITY [None]
  - PYREXIA [None]
  - RASH [None]
